FAERS Safety Report 23686861 (Version 1)
Quarter: 2024Q1

REPORT INFORMATION
  Report Type: Spontaneous
  Country: CN (occurrence: CN)
  Receive Date: 20240329
  Receipt Date: 20240329
  Transmission Date: 20240410
  Serious: Yes (Death, Hospitalization)
  Sender: FDA-Public Use
  Company Number: CN-STERISCIENCE B.V.-2024-ST-000341

PATIENT
  Age: 18 Year
  Sex: Female

DRUGS (13)
  1. SODIUM BICARBONATE [Suspect]
     Active Substance: SODIUM BICARBONATE
     Indication: Metabolic acidosis
     Dosage: UNK
     Route: 065
  2. PROPAFENONE [Concomitant]
     Active Substance: PROPAFENONE
     Indication: Ventricular extrasystoles
     Dosage: UNK
     Route: 065
  3. PROPAFENONE [Concomitant]
     Active Substance: PROPAFENONE
     Dosage: LARGE DOSES (DRUG OVERDOSE)
     Route: 065
  4. DIAZEPAM [Concomitant]
     Active Substance: DIAZEPAM
     Indication: Depression
     Dosage: UNK
     Route: 065
  5. DIAZEPAM [Concomitant]
     Active Substance: DIAZEPAM
     Dosage: LARGE DOSES (DRUG OVERDOSE)
     Route: 065
  6. EPINEPHRINE [Concomitant]
     Active Substance: EPINEPHRINE
     Indication: Cardiac arrest
     Dosage: UNK
     Route: 065
  7. EPINEPHRINE [Concomitant]
     Active Substance: EPINEPHRINE
     Indication: Haemodynamic instability
  8. NOREPINEPHRINE [Concomitant]
     Active Substance: NOREPINEPHRINE\NOREPINEPHRINE BITARTRATE
     Indication: Haemodynamic instability
     Dosage: UNK
     Route: 065
  9. DEXTROSE [Concomitant]
     Active Substance: DEXTROSE\DEXTROSE MONOHYDRATE
     Indication: Toxicity to various agents
     Dosage: UNK
     Route: 065
  10. DOPAMINE [Concomitant]
     Active Substance: DOPAMINE HYDROCHLORIDE
     Indication: Haemodynamic instability
     Dosage: UNK
     Route: 065
  11. ISOPROTERENOL [Concomitant]
     Active Substance: ISOPROTERENOL
     Indication: Cardiac arrest
     Dosage: UNK
     Route: 065
  12. ATROPINE [Concomitant]
     Active Substance: ATROPINE\ATROPINE SULFATE
     Indication: Cardiac arrest
     Dosage: UNK
     Route: 065
  13. INSULIN NOS [Concomitant]
     Active Substance: INSULIN NOS
     Indication: Toxicity to various agents
     Dosage: HIGH-DOSE
     Route: 065

REACTIONS (1)
  - Drug ineffective [Fatal]
